FAERS Safety Report 24928538 (Version 1)
Quarter: 2025Q1

REPORT INFORMATION
  Report Type: Spontaneous
  Country: US (occurrence: US)
  Receive Date: 20250205
  Receipt Date: 20250205
  Transmission Date: 20250409
  Serious: No
  Sender: MERCK
  Company Number: US-009507513-2502USA001287

PATIENT
  Sex: Male
  Weight: 78.458 kg

DRUGS (17)
  1. WINREVAIR [Suspect]
     Active Substance: SOTATERCEPT-CSRK
     Indication: Product used for unknown indication
  2. TYVASO DPI [Suspect]
     Active Substance: TREPROSTINIL
     Indication: Pulmonary arterial hypertension
     Dosage: 64 MICROGRAM, QID, STRENGTH UNKNOWN
     Dates: start: 20230809
  3. TYVASO DPI [Suspect]
     Active Substance: TREPROSTINIL
  4. TRULICITY [Concomitant]
     Active Substance: DULAGLUTIDE
  5. FUROSEMIDE [Concomitant]
     Active Substance: FUROSEMIDE
  6. LOSARTAN POTASSIUM [Concomitant]
     Active Substance: LOSARTAN POTASSIUM
  7. TADALAFIL [Concomitant]
     Active Substance: TADALAFIL
  8. ALLOPURINOL [Concomitant]
     Active Substance: ALLOPURINOL
  9. ASPIRIN [Concomitant]
     Active Substance: ASPIRIN
  10. ROSUVASTATIN CALCIUM [Concomitant]
     Active Substance: ROSUVASTATIN CALCIUM
  11. CALCITRIOL [Concomitant]
     Active Substance: CALCITRIOL
  12. OPSUMIT [Concomitant]
     Active Substance: MACITENTAN
  13. OFEV [Concomitant]
     Active Substance: NINTEDANIB
  14. VITAMIN D3 [Concomitant]
     Active Substance: CHOLECALCIFEROL
  15. OXYGEN [Concomitant]
     Active Substance: OXYGEN
  16. B 12 [Concomitant]
  17. OMEPRAZOLE [Concomitant]
     Active Substance: OMEPRAZOLE

REACTIONS (3)
  - Eye haemorrhage [Unknown]
  - Gingival bleeding [Unknown]
  - Epistaxis [Unknown]
